FAERS Safety Report 12134193 (Version 1)
Quarter: 2016Q1

REPORT INFORMATION
  Report Type: Spontaneous
  Country: US (occurrence: US)
  Receive Date: 20160301
  Receipt Date: 20160301
  Transmission Date: 20160526
  Serious: No
  Sender: FDA-Public Use
  Company Number: US-GLAXOSMITHKLINE-US2016025800

PATIENT
  Sex: Male

DRUGS (12)
  1. COREG CR [Suspect]
     Active Substance: CARVEDILOL PHOSPHATE
     Indication: PRODUCT USED FOR UNKNOWN INDICATION
     Dosage: 40 MG, QD
     Route: 048
  2. ASPIRIN. [Concomitant]
     Active Substance: ASPIRIN
  3. XANAX [Concomitant]
     Active Substance: ALPRAZOLAM
  4. LIPITOR [Concomitant]
     Active Substance: ATORVASTATIN CALCIUM
  5. EPLERENONE. [Concomitant]
     Active Substance: EPLERENONE
  6. COUMADIN [Concomitant]
     Active Substance: WARFARIN SODIUM
  7. IMDUR [Concomitant]
     Active Substance: ISOSORBIDE MONONITRATE
  8. LASIX [Concomitant]
     Active Substance: FUROSEMIDE
  9. LOSARTAN. [Concomitant]
     Active Substance: LOSARTAN
  10. PRILOSEC [Concomitant]
     Active Substance: OMEPRAZOLE MAGNESIUM
  11. NORVASC [Concomitant]
     Active Substance: AMLODIPINE BESYLATE
  12. DIGOXIN. [Concomitant]
     Active Substance: DIGOXIN

REACTIONS (2)
  - Vision blurred [Not Recovered/Not Resolved]
  - Eye disorder [Not Recovered/Not Resolved]
